FAERS Safety Report 25502668 (Version 1)
Quarter: 2025Q3

REPORT INFORMATION
  Report Type: Spontaneous
  Country: US (occurrence: US)
  Receive Date: 20250702
  Receipt Date: 20250702
  Transmission Date: 20251021
  Serious: Yes (Hospitalization, Other)
  Sender: IPCA
  Company Number: US-IPCA LABORATORIES LIMITED-IPC-2025-US-001727

PATIENT

DRUGS (5)
  1. ONDANSETRON [Suspect]
     Active Substance: ONDANSETRON
     Indication: Gastritis
     Route: 065
  2. IBUPROFEN [Concomitant]
     Active Substance: IBUPROFEN
     Indication: Pyrexia
     Route: 065
  3. IBUPROFEN [Concomitant]
     Active Substance: IBUPROFEN
     Indication: Rash
  4. IBUPROFEN [Concomitant]
     Active Substance: IBUPROFEN
     Indication: Diarrhoea
  5. IBUPROFEN [Concomitant]
     Active Substance: IBUPROFEN
     Indication: Arthralgia

REACTIONS (2)
  - Tubulointerstitial nephritis [Recovered/Resolved]
  - Condition aggravated [Recovered/Resolved]
